FAERS Safety Report 16202847 (Version 1)
Quarter: 2019Q2

REPORT INFORMATION
  Report Type: Spontaneous
  Country: US (occurrence: US)
  Receive Date: 20190416
  Receipt Date: 20190416
  Transmission Date: 20190711
  Serious: No
  Sender: FDA-Public Use
  Company Number: US-PFIZER INC-2019160671

PATIENT
  Age: 47 Year
  Sex: Female
  Weight: 81.18 kg

DRUGS (5)
  1. DOXIL [PEGYLATED LIPOSOMAL DOXORUBICIN HYDROCHLORIDE] [Concomitant]
  2. TAXOL [Concomitant]
     Active Substance: PACLITAXEL
  3. DOCETAXEL. [Suspect]
     Active Substance: DOCETAXEL
     Indication: BREAST CANCER
     Dosage: UNK UNK, CYCLIC (EVERY OTHER WEDNESDAY)
     Dates: start: 20090112, end: 20090715
  4. NEOSAR [Concomitant]
     Active Substance: CYCLOPHOSPHAMIDE
  5. ADRIAMYCIN [Concomitant]
     Active Substance: DOXORUBICIN HYDROCHLORIDE

REACTIONS (2)
  - Mental disorder [Unknown]
  - Alopecia [Not Recovered/Not Resolved]
